FAERS Safety Report 7562045-2 (Version None)
Quarter: 2011Q2

REPORT INFORMATION
  Report Type: 
  Country: None (occurrence: None)
  Receive Date: 20110622
  Receipt Date: 20090304
  Transmission Date: 20111010
  Serious: Yes (Death)
  Sender: FDA-Public Use
  Company Number: PHHY2009DE68653

PATIENT
  Sex: Female
  Weight: 70 kg

DRUGS (3)
  1. METAMIZOLE [Concomitant]
     Dosage: UNK
  2. SANDOSTATIN LAR [Suspect]
     Indication: PANCREATIC NEUROENDOCRINE TUMOUR
     Dosage: 30 MG, UNK
     Route: 030
     Dates: start: 20080101
  3. LOPEDIUM [Concomitant]
     Dosage: 1 UNK, QD

REACTIONS (4)
  - BLOOD GLUCOSE DECREASED [None]
  - BACK PAIN [None]
  - VAGINAL HAEMORRHAGE [None]
  - DIARRHOEA [None]
